FAERS Safety Report 8113377 (Version 3)
Quarter: 2014Q2

REPORT INFORMATION
  Report Type: Spontaneous
  Country: US (occurrence: US)
  Receive Date: 20110830
  Receipt Date: 20140630
  Transmission Date: 20141212
  Serious: Yes (Hospitalization)
  Sender: FDA-Public Use
  Company Number: US-GLAXOSMITHKLINE-B0743112A

PATIENT
  Age: 56 Year
  Sex: Male

DRUGS (1)
  1. AVANDIA [Suspect]
     Indication: DIABETES MELLITUS
     Dosage: 4MG PER DAY
     Route: 048
     Dates: start: 20090911, end: 20100624

REACTIONS (6)
  - Cerebrovascular accident [Not Recovered/Not Resolved]
  - Depressed level of consciousness [Unknown]
  - Acute myocardial infarction [Unknown]
  - Atrioventricular block [Unknown]
  - Abasia [Unknown]
  - Speech disorder [Unknown]
